FAERS Safety Report 11227272 (Version 1)
Quarter: 2015Q2

REPORT INFORMATION
  Report Type: Spontaneous
  Country: GB (occurrence: GB)
  Receive Date: 20150630
  Receipt Date: 20150630
  Transmission Date: 20150821
  Serious: Yes (Hospitalization, Other)
  Sender: FDA-Public Use
  Company Number: GB-DRREDDYS-GER/UKI/15/0048964

PATIENT
  Age: 43 Year
  Sex: Male

DRUGS (2)
  1. CETIRIZINE HYDROCHLORIDE 10MG TABLETS [Suspect]
     Active Substance: CETIRIZINE HYDROCHLORIDE
     Indication: URTICARIA
     Route: 048
     Dates: end: 20150611
  2. CETIRIZINE HYDROCHLORIDE 10MG TABLETS [Suspect]
     Active Substance: CETIRIZINE HYDROCHLORIDE
     Indication: URTICARIA
     Route: 048

REACTIONS (4)
  - Rash [Recovering/Resolving]
  - Atrial fibrillation [Recovered/Resolved]
  - Pruritus [Recovered/Resolved]
  - Urticaria [Recovering/Resolving]

NARRATIVE: CASE EVENT DATE: 20150605
